FAERS Safety Report 6618276 (Version 2)
Quarter: 2019Q2

REPORT INFORMATION
  Report Type: Report from Study
  Country: GB (occurrence: GB)
  Receive Date: 20080418
  Receipt Date: 20190629
  Transmission Date: 20190711
  Serious: Yes (Other)
  Sender: FDA-Public Use
  Company Number: GB-ROCHE-559429

PATIENT
  Age: 54 Year
  Sex: Male

DRUGS (2)
  1. ASPIRIN [ACETYLSALICYLIC ACID] [Concomitant]
     Active Substance: ASPIRIN
     Route: 065
  2. DIAZEPAM. [Suspect]
     Active Substance: DIAZEPAM
     Indication: SEDATION
     Dosage: 5-10MG INTRAVENOUSLY, WITH FURTHER ALIQUOTS OF 5-1O MG EACH MINUTE, UNTIL ADEQUATE SEDATION.
     Route: 042

REACTIONS (1)
  - Transient ischaemic attack [Recovered/Resolved]
